FAERS Safety Report 8547140-3 (Version None)
Quarter: 2012Q3

REPORT INFORMATION
  Report Type: 
  Country: None (occurrence: None)
  Receive Date: 20120727
  Receipt Date: 20120217
  Transmission Date: 20120928
  Serious: No
  Sender: FDA-Public Use
  Company Number: US-ASTRAZENECA-2012SE11739

PATIENT
  Age: 54 Year
  Sex: Female

DRUGS (1)
  1. SEROQUEL [Suspect]
     Route: 048

REACTIONS (5)
  - SPEECH DISORDER [None]
  - RASH [None]
  - DIZZINESS [None]
  - VISUAL IMPAIRMENT [None]
  - GAIT DISTURBANCE [None]
